FAERS Safety Report 4376353-X (Version None)
Quarter: 2004Q2

REPORT INFORMATION
  Report Type: 
  Country: None (occurrence: None)
  Receive Date: 20040612
  Receipt Date: 20040604
  Transmission Date: 20050107
  Serious: Yes (Hospitalization)
  Sender: FDA-Public Use
  Company Number: GB-JNJFOC-20040601197

PATIENT
  Age: 48 Year
  Sex: Male

DRUGS (10)
  1. REMICADE [Suspect]
     Indication: RHEUMATOID ARTHRITIS
     Route: 042
  2. ALENDRONATE SODIUM [Concomitant]
     Route: 049
  3. CALCICHEW [Concomitant]
     Route: 049
  4. CO-PROXAMOL [Concomitant]
     Route: 049
  5. CO-PROXAMOL [Concomitant]
     Route: 049
  6. PREDNISOLONE [Concomitant]
     Route: 049
  7. METOCLOPRAMIDE [Concomitant]
  8. RANITIDINE [Concomitant]
  9. ZOPICLONE [Concomitant]
  10. DOSULEPIN [Concomitant]

REACTIONS (6)
  - ARTHRALGIA [None]
  - CHILLS [None]
  - COUGH [None]
  - FEELING COLD [None]
  - NAUSEA [None]
  - VOMITING [None]
